FAERS Safety Report 18472621 (Version 1)
Quarter: 2020Q4

REPORT INFORMATION
  Report Type: Spontaneous
  Country: IL (occurrence: IL)
  Receive Date: 20201106
  Receipt Date: 20201106
  Transmission Date: 20210114
  Serious: Yes (Other)
  Sender: FDA-Public Use
  Company Number: IL-AMGEN-ISRSP2020176968

PATIENT
  Age: 69 Year
  Sex: Female

DRUGS (4)
  1. VITAMIN D [COLECALCIFEROL] [Concomitant]
     Active Substance: CHOLECALCIFEROL
     Dosage: 2000 INTERNATIONAL UNIT
  2. PROLIA [Suspect]
     Active Substance: DENOSUMAB
     Indication: OSTEOPOROSIS
     Dosage: 60 MILLIGRAM, Q6MO
     Route: 065
     Dates: start: 2016
  3. CALCIUM CITRATE [Concomitant]
     Active Substance: CALCIUM CITRATE
     Dosage: 300 MILLIGRAM
  4. PREDNISONE. [Concomitant]
     Active Substance: PREDNISONE
     Dosage: 20 MILLIGRAM, QD

REACTIONS (7)
  - Inappropriate antidiuretic hormone secretion [Unknown]
  - Neutrophilia [Unknown]
  - Thrombocytosis [Unknown]
  - Haemangioma of bone [Unknown]
  - Osteoporotic fracture [Recovering/Resolving]
  - Anaemia [Unknown]
  - Hypercalcaemia of malignancy [Unknown]

NARRATIVE: CASE EVENT DATE: 2019
